FAERS Safety Report 11275094 (Version 2)
Quarter: 2015Q3

REPORT INFORMATION
  Report Type: Report from Study
  Country: IT (occurrence: IT)
  Receive Date: 20150716
  Receipt Date: 20150820
  Transmission Date: 20151125
  Serious: Yes (Hospitalization)
  Sender: FDA-Public Use
  Company Number: IT-009507513-1507ITA002741

PATIENT
  Age: 72 Year
  Sex: Female

DRUGS (6)
  1. LEVOXACIN [Concomitant]
     Active Substance: LEVOFLOXACIN
     Dosage: UNK, STRENGTH ALSO REPORTED AS 125 MICROGRAM
     Dates: start: 20150623, end: 20150702
  2. HALCION [Concomitant]
     Active Substance: TRIAZOLAM
     Indication: INSOMNIA
     Dosage: UNK
     Route: 048
     Dates: start: 20150608, end: 20150702
  3. RIBAVIRIN. [Suspect]
     Active Substance: RIBAVIRIN
     Indication: HEPATITIS C ANTIBODY POSITIVE
     Dosage: TOTAL DAILY DOSE: 1000 MG, QD
     Route: 048
     Dates: start: 20150608
  4. SOVALDI [Suspect]
     Active Substance: SOFOSBUVIR
     Indication: HEPATITIS C ANTIBODY POSITIVE
     Dosage: 400 MG, QD
     Route: 048
     Dates: start: 20150608
  5. CLEXANE (ENOXAPARIN SODIUM) [Concomitant]
     Active Substance: ENOXAPARIN SODIUM
     Dosage: UNK, STRENGHT: 6000 IU AXA/0.6 ML, FORMULATION: INJECTABLE SOLUTION FOR SUBCUTANEOUS USE
     Dates: start: 20150623, end: 20150702
  6. CITALOPRAM HYDROBROMIDE. [Concomitant]
     Active Substance: CITALOPRAM HYDROBROMIDE
     Indication: ANXIETY
     Dosage: UNK
     Route: 048
     Dates: start: 20150608, end: 20150702

REACTIONS (2)
  - Balance disorder [Unknown]
  - Head injury [Unknown]

NARRATIVE: CASE EVENT DATE: 20150626
